FAERS Safety Report 9334948 (Version 1)
Quarter: 2013Q2

REPORT INFORMATION
  Report Type: Spontaneous
  Country: US (occurrence: US)
  Receive Date: 20130606
  Receipt Date: 20130606
  Transmission Date: 20140414
  Serious: No
  Sender: FDA-Public Use
  Company Number: US-AMGEN-USASP2013015452

PATIENT
  Age: 39 Year
  Sex: Male

DRUGS (14)
  1. PROLIA [Suspect]
     Indication: OSTEOPOROSIS
     Dosage: 60 MG, Q6MO
     Route: 058
     Dates: start: 20130226
  2. ATORVASTATIN [Concomitant]
     Indication: HYPERLIPIDAEMIA
     Dosage: UNK
     Route: 048
  3. LYRICA [Concomitant]
     Indication: PAIN
     Dosage: 100 MG, UNK
     Route: 048
  4. BENZONATATE [Concomitant]
     Dosage: UNK
  5. MONTELUKAST [Concomitant]
     Indication: COUGH
     Dosage: 10 MG, UNK
     Route: 048
  6. DICYCLOMINE                        /00068601/ [Concomitant]
     Indication: GASTRITIS
     Dosage: UNK UNK, QID
     Route: 048
  7. OMEPRAZOLE [Concomitant]
     Dosage: UNK
  8. TUSSIONEX                          /00004701/ [Concomitant]
     Dosage: UNK
  9. SYMBICORT [Concomitant]
     Dosage: UNK
  10. VITAMIN C                          /00008001/ [Concomitant]
     Dosage: UNK
  11. VITAMIN D                          /00107901/ [Concomitant]
  12. MULTIVITAMIN                       /00097801/ [Concomitant]
     Dosage: UNK
  13. TESTIM [Concomitant]
     Indication: HYPOGONADISM
     Dosage: UNK
     Route: 061
  14. ACETAMINOPHEN [Concomitant]
     Dosage: UNK

REACTIONS (3)
  - Pain in jaw [Recovered/Resolved]
  - Ear discomfort [Recovered/Resolved]
  - Headache [Unknown]
